FAERS Safety Report 7994030-0 (Version None)
Quarter: 2011Q4

REPORT INFORMATION
  Report Type: 
  Country: None (occurrence: None)
  Receive Date: 20111220
  Receipt Date: 20111215
  Transmission Date: 20120403
  Serious: No
  Sender: FDA-Public Use
  Company Number: PHEH2011US011942

PATIENT
  Sex: Female
  Weight: 86.168 kg

DRUGS (3)
  1. TASIGNA [Suspect]
     Dosage: 2 DF, BID
     Route: 048
  2. SYNTHROID [Concomitant]
     Dosage: 112 UG, DAILY
  3. TENORMIN [Concomitant]
     Dosage: 50 MG, DAILY

REACTIONS (4)
  - VITAMIN B12 DECREASED [None]
  - HAEMOGLOBIN DECREASED [None]
  - PLATELET COUNT DECREASED [None]
  - WHITE BLOOD CELL COUNT DECREASED [None]
